FAERS Safety Report 4826848-7 (Version None)
Quarter: 2005Q4

REPORT INFORMATION
  Report Type: 
  Country: None (occurrence: None)
  Receive Date: 20051014
  Receipt Date: 20050705
  Transmission Date: 20060501
  Serious: No
  Sender: FDA-Public Use
  Company Number: 2005SP001732

PATIENT
  Age: 56 Year
  Sex: Male
  Weight: 133.8111 kg

DRUGS (6)
  1. LUNESTA [Suspect]
     Indication: INSOMNIA
     Dosage: 3 MG;HS;ORAL
     Route: 048
     Dates: start: 20050701, end: 20050701
  2. HYZAAR [Concomitant]
  3. PROZAC [Concomitant]
  4. NORVASC [Concomitant]
  5. WELLBUTRIN [Concomitant]
  6. ATIVAN [Concomitant]

REACTIONS (3)
  - DRUG INEFFECTIVE [None]
  - FEELING JITTERY [None]
  - MIDDLE INSOMNIA [None]
